FAERS Safety Report 11109697 (Version 4)
Quarter: 2018Q3

REPORT INFORMATION
  Report Type: Report from Study
  Country: US (occurrence: US)
  Receive Date: 20150513
  Receipt Date: 20180716
  Transmission Date: 20181010
  Serious: Yes (Other)
  Sender: FDA-Public Use
  Company Number: US-SA-2014SA016795

PATIENT
  Age: 63 Year
  Sex: Female

DRUGS (5)
  1. TERIFLUNOMIDE [Suspect]
     Active Substance: TERIFLUNOMIDE
     Indication: MULTIPLE SCLEROSIS
     Dosage: 7 MG,QD
     Route: 048
     Dates: start: 20130517, end: 20130616
  2. TERIFLUNOMIDE [Suspect]
     Active Substance: TERIFLUNOMIDE
     Dosage: 14 MG,QD
     Route: 048
     Dates: start: 20130617, end: 20170901
  3. INSULIN [Concomitant]
     Active Substance: INSULIN NOS
     Indication: TYPE 2 DIABETES MELLITUS
     Dosage: 20 U, QD
  4. METHOTREXATE. [Concomitant]
     Active Substance: METHOTREXATE
     Indication: RHEUMATOID ARTHRITIS
  5. HUMALOG [Concomitant]
     Active Substance: INSULIN LISPRO
     Dosage: 15 U

REACTIONS (23)
  - Pain [Not Recovered/Not Resolved]
  - Glycosylated haemoglobin decreased [Unknown]
  - Drug dose omission [Unknown]
  - Dyspnoea [Not Recovered/Not Resolved]
  - Fatigue [Unknown]
  - Musculoskeletal discomfort [Unknown]
  - Weight decreased [Unknown]
  - Productive cough [Not Recovered/Not Resolved]
  - Stress [Not Recovered/Not Resolved]
  - Sleep apnoea syndrome [Not Recovered/Not Resolved]
  - Breast discomfort [Not Recovered/Not Resolved]
  - Erythema [Recovered/Resolved]
  - Glaucoma [Unknown]
  - Visual impairment [Not Recovered/Not Resolved]
  - Nephrolithiasis [Not Recovered/Not Resolved]
  - Kidney infection [Not Recovered/Not Resolved]
  - Gait disturbance [Recovering/Resolving]
  - Pulmonary fibrosis [Not Recovered/Not Resolved]
  - Diabetic neuropathy [Unknown]
  - Herpes zoster [Not Recovered/Not Resolved]
  - Spinal operation [Unknown]
  - Mental disorder [Unknown]
  - Cough [Not Recovered/Not Resolved]

NARRATIVE: CASE EVENT DATE: 20140905
